FAERS Safety Report 8846124 (Version 1)
Quarter: 2012Q4

REPORT INFORMATION
  Report Type: 
  Country: US (occurrence: US)
  Receive Date: 20121017
  Receipt Date: 20121017
  Transmission Date: 20130627
  Serious: Yes (Other)
  Sender: FDA-Public Use
  Company Number: US-ELI_LILLY_AND_COMPANY-US201103005282

PATIENT
  Sex: Female

DRUGS (4)
  1. FORTEO [Suspect]
     Indication: OSTEOPOROSIS
     Dosage: 20 ug, qd
     Dates: start: 2004, end: 2006
  2. FORTEO [Suspect]
     Dosage: 20 ug, qd
  3. FORTEO [Suspect]
     Dosage: 20 ug, qd
     Dates: start: 201103, end: 201209
  4. FORTEO [Suspect]
     Dosage: 20 ug, qd
     Dates: start: 20121002

REACTIONS (11)
  - Movement disorder [Unknown]
  - Injection site erythema [Not Recovered/Not Resolved]
  - Intentional drug misuse [Unknown]
  - Pain [Not Recovered/Not Resolved]
  - Injection site mass [Unknown]
  - Erythema [Unknown]
  - Spinal pain [Unknown]
  - Drug dose omission [Unknown]
  - Rash macular [Unknown]
  - Drug hypersensitivity [Unknown]
  - Multiple sclerosis [Unknown]
